FAERS Safety Report 17336717 (Version 1)
Quarter: 2020Q1

REPORT INFORMATION
  Report Type: Spontaneous
  Country: US (occurrence: US)
  Receive Date: 20200129
  Receipt Date: 20200129
  Transmission Date: 20200409
  Serious: Yes (Other)
  Sender: FDA-Public Use
  Company Number: US-CIPLA LTD.-2020US00493

PATIENT

DRUGS (2)
  1. ALENDRONATE [Suspect]
     Active Substance: ALENDRONATE SODIUM
     Indication: BREAST CANCER STAGE I
     Dosage: 70 MG, ONCE A WEEK
     Route: 048
     Dates: start: 201908, end: 20190823
  2. LETROZOLE. [Suspect]
     Active Substance: LETROZOLE
     Indication: AROMATASE INHIBITION THERAPY
     Dosage: 2.5 MILLIGRAM/DAY
     Route: 065
     Dates: start: 2019, end: 2019

REACTIONS (6)
  - Arthritis [Recovering/Resolving]
  - Hypertension [Not Recovered/Not Resolved]
  - Product use in unapproved indication [Unknown]
  - Unevaluable event [Recovering/Resolving]
  - Condition aggravated [Not Recovered/Not Resolved]
  - Off label use [Unknown]

NARRATIVE: CASE EVENT DATE: 201908
